FAERS Safety Report 5509258-9 (Version None)
Quarter: 2007Q4

REPORT INFORMATION
  Report Type: 
  Country: None (occurrence: None)
  Receive Date: 20071107
  Receipt Date: 20071106
  Transmission Date: 20080405
  Serious: No
  Sender: FDA-Public Use
  Company Number: US-BOEHRINGER INGELHEIM PHARMACEUTICALS, INC.-2007-BP-23765BP

PATIENT
  Age: 80 Year
  Sex: Female

DRUGS (3)
  1. MICARDIS [Suspect]
     Indication: HYPERTENSION
     Route: 048
     Dates: start: 20070801
  2. SYNTHROID [Concomitant]
  3. VITAMIN B-12 [Concomitant]

REACTIONS (3)
  - DIPLOPIA [None]
  - NEOPLASM OF ORBIT [None]
  - VISION BLURRED [None]
